FAERS Safety Report 6852836-5 (Version None)
Quarter: 2010Q3

REPORT INFORMATION
  Report Type: 
  Country: None (occurrence: None)
  Receive Date: 20100717
  Receipt Date: 20080126
  Transmission Date: 20110219
  Serious: Yes (Other)
  Sender: FDA-Public Use
  Company Number: US-PFIZER INC-2007098325

PATIENT
  Sex: Female
  Weight: 147.3 kg

DRUGS (13)
  1. CHANTIX [Suspect]
     Indication: SMOKING CESSATION THERAPY
     Route: 048
     Dates: start: 20071104, end: 20071107
  2. OXYGEN [Concomitant]
     Indication: SLEEP APNOEA SYNDROME
  3. BACTRIM [Concomitant]
  4. METOPROLOL [Concomitant]
     Dosage: 200MG
  5. LASIX [Concomitant]
  6. COUMADIN [Concomitant]
  7. HYDROCODONE [Concomitant]
  8. LISINOPRIL [Concomitant]
  9. CADUET [Concomitant]
  10. POTASSIUM CHLORIDE [Concomitant]
  11. ADVAIR DISKUS 100/50 [Concomitant]
     Route: 055
  12. COMBIVENT [Concomitant]
     Route: 055
  13. PLAVIX [Concomitant]

REACTIONS (4)
  - CHILLS [None]
  - DYSARTHRIA [None]
  - MENTAL IMPAIRMENT [None]
  - SOMNOLENCE [None]
